FAERS Safety Report 9284570 (Version 1)
Quarter: 2013Q2

REPORT INFORMATION
  Report Type: Spontaneous
  Country: US (occurrence: US)
  Receive Date: 20130511
  Receipt Date: 20130511
  Transmission Date: 20140414
  Serious: No
  Sender: FDA-Public Use
  Company Number: US-TEVA-402892USA

PATIENT
  Age: 69 Year
  Sex: Female
  Weight: 111.68 kg

DRUGS (2)
  1. AZILECT [Suspect]
     Indication: PARKINSON^S DISEASE
     Dosage: .5 MILLIGRAM DAILY;
     Dates: start: 201304, end: 20130427
  2. AZILECT [Suspect]
     Dosage: 1 MILLIGRAM DAILY;
     Dates: start: 20130428

REACTIONS (3)
  - Tremor [Not Recovered/Not Resolved]
  - Movement disorder [Unknown]
  - Fall [Unknown]
